FAERS Safety Report 5278841-0 (Version None)
Quarter: 2007Q1

REPORT INFORMATION
  Report Type: 
  Country: None (occurrence: None)
  Receive Date: 20070322
  Receipt Date: 20070314
  Transmission Date: 20070707
  Serious: Yes (Hospitalization)
  Sender: FDA-Public Use
  Company Number: 2007BI005121

PATIENT
  Age: 43 Year
  Sex: Female

DRUGS (2)
  1. AVONEX [Suspect]
     Indication: DRUG USE FOR UNKNOWN INDICATION
     Dosage: 30 UG;QW;IM
     Route: 030
     Dates: start: 20011205
  2. AVONEX [Suspect]
     Indication: MULTIPLE SCLEROSIS
     Dosage: 30 UG;QW;IM
     Route: 030
     Dates: start: 20041101

REACTIONS (8)
  - ABASIA [None]
  - ASTHENIA [None]
  - COLITIS [None]
  - CONDITION AGGRAVATED [None]
  - DEHYDRATION [None]
  - MULTIPLE SCLEROSIS [None]
  - PHARYNGITIS STREPTOCOCCAL [None]
  - STRESS [None]
